FAERS Safety Report 14338537 (Version 2)
Quarter: 2018Q1

REPORT INFORMATION
  Report Type: Spontaneous
  Country: DE (occurrence: DE)
  Receive Date: 20171229
  Receipt Date: 20180124
  Transmission Date: 20180509
  Serious: Yes (Other)
  Sender: FDA-Public Use
  Company Number: DE-TEVA-2017-DE-837785

PATIENT
  Sex: Female
  Weight: 52 kg

DRUGS (13)
  1. RAMIPRIL 5 MG [Suspect]
     Active Substance: RAMIPRIL
     Route: 048
  2. LYRICA [Concomitant]
     Active Substance: PREGABALIN
  3. MORPHIN 10 MG RETARD [Suspect]
     Active Substance: MORPHINE
     Route: 048
  4. INSULIN TRESIBA [Concomitant]
  5. BISOPROLOL 5 MG [Concomitant]
     Active Substance: BISOPROLOL
  6. MOVICOL [Concomitant]
     Active Substance: POLYETHYLENE GLYCOL 3350\POTASSIUM CHLORIDE\SODIUM BICARBONATE\SODIUM CHLORIDE
  7. IBUPROFEN. [Concomitant]
     Active Substance: IBUPROFEN
  8. FLUOXETINE [Suspect]
     Active Substance: FLUOXETINE HYDROCHLORIDE
     Indication: DEPRESSION
     Dosage: REDUCED TO 20 MG
     Route: 065
     Dates: start: 2005, end: 201602
  9. NOVALGIN (METAMIZOLE SODIUM) [Concomitant]
     Active Substance: METAMIZOLE SODIUM
  10. HUMALOG [Concomitant]
     Active Substance: INSULIN LISPRO
  11. L-THYROX 125 MICROG [Concomitant]
  12. TRIMIPRAMIN-NEURAXPHARM [Suspect]
     Active Substance: TRIMIPRAMINE MALEATE
     Indication: DEPRESSION
     Dosage: REDUCED TO 25 MG
     Route: 065
     Dates: start: 2005, end: 201602
  13. SIRDALUD 2 MG [Concomitant]

REACTIONS (7)
  - Arthralgia [Not Recovered/Not Resolved]
  - Balance disorder [Recovering/Resolving]
  - Fractured sacrum [Not Recovered/Not Resolved]
  - Bone erosion [Unknown]
  - Muscle atrophy [Unknown]
  - Body height decreased [Not Recovered/Not Resolved]
  - Hyponatraemia [Recovered/Resolved]

NARRATIVE: CASE EVENT DATE: 2005
